FAERS Safety Report 5489954-2 (Version None)
Quarter: 2007Q4

REPORT INFORMATION
  Report Type: 
  Country: None (occurrence: None)
  Receive Date: 20071018
  Receipt Date: 20071009
  Transmission Date: 20080405
  Serious: Yes (Hospitalization)
  Sender: FDA-Public Use
  Company Number: FR-SANOFI-SYNTHELABO-A02200703011

PATIENT
  Sex: Male

DRUGS (5)
  1. SPIRAMYCINE [Suspect]
     Indication: TOOTH EXTRACTION
     Dosage: UNK
     Route: 048
     Dates: start: 20070501, end: 20070501
  2. NIFLURIL [Suspect]
     Indication: TOOTH EXTRACTION
     Dosage: UNK
     Route: 048
     Dates: start: 20070501, end: 20070501
  3. CYPHER [Suspect]
     Indication: CORONARY ANGIOPLASTY
     Dosage: UNK
     Route: 065
     Dates: start: 20070105
  4. KARDEGIC [Suspect]
     Indication: CORONARY ANGIOPLASTY
     Route: 048
     Dates: start: 20070105
  5. PLAVIX [Suspect]
     Indication: CORONARY ANGIOPLASTY
     Route: 048
     Dates: start: 20070105

REACTIONS (5)
  - ABDOMINAL PAIN [None]
  - CROHN'S DISEASE [None]
  - DIARRHOEA [None]
  - RECTAL HAEMORRHAGE [None]
  - WEIGHT DECREASED [None]
